FAERS Safety Report 9402643 (Version 2)
Quarter: 2013Q3

REPORT INFORMATION
  Report Type: Spontaneous
  Country: DK (occurrence: DK)
  Receive Date: 20130716
  Receipt Date: 20130726
  Transmission Date: 20140515
  Serious: No
  Sender: FDA-Public Use
  Company Number: DK-ASTELLAS-2013EU005776

PATIENT
  Sex: Female

DRUGS (8)
  1. BETMIGA [Suspect]
     Indication: HYPERTONIC BLADDER
     Dosage: 50 MG, UNKNOWN/D
     Route: 065
     Dates: start: 20130601
  2. MARCOUMAR [Interacting]
     Dosage: UNK
     Route: 065
  3. MARCOUMAR [Interacting]
     Dosage: 1.61 MG, UNKNOWN/D
     Route: 065
  4. MARCOUMAR [Interacting]
     Dosage: 1.18 MG, UNKNOWN/D
     Route: 065
  5. CENTYL [Concomitant]
     Dosage: UNK
     Route: 065
  6. ACETYLSALICYLIC ACID [Concomitant]
     Dosage: UNK
     Route: 065
  7. LOSARTAN POTASSIUM [Concomitant]
     Dosage: UNK
     Route: 065
  8. ZARATOR                            /01326101/ [Concomitant]
     Dosage: UNK
     Route: 065

REACTIONS (3)
  - Drug interaction [Not Recovered/Not Resolved]
  - International normalised ratio increased [Recovered/Resolved]
  - Prothrombin time prolonged [Unknown]
